FAERS Safety Report 17205602 (Version 1)
Quarter: 2019Q4

REPORT INFORMATION
  Report Type: Spontaneous
  Country: DK (occurrence: DK)
  Receive Date: 20191227
  Receipt Date: 20191227
  Transmission Date: 20200122
  Serious: Yes (Other)
  Sender: FDA-Public Use
  Company Number: DK-TEVA-2019-DK-1157426

PATIENT
  Age: 83 Year
  Sex: Female

DRUGS (1)
  1. PREDNISOLON ^DLF^ [Suspect]
     Active Substance: PREDNISOLONE
     Indication: COLITIS ULCERATIVE
     Dosage: STRENGTH: 5 MG
     Route: 048
     Dates: start: 20191010

REACTIONS (2)
  - Type 2 diabetes mellitus [Unknown]
  - Hyperglycaemia [Recovering/Resolving]

NARRATIVE: CASE EVENT DATE: 201911
